FAERS Safety Report 4746989-2 (Version None)
Quarter: 2005Q3

REPORT INFORMATION
  Report Type: 
  Country: None (occurrence: None)
  Receive Date: 20050817
  Receipt Date: 20050809
  Transmission Date: 20060218
  Serious: Yes (Other)
  Sender: FDA-Public Use
  Company Number: US-JNJFOC-20050704635

PATIENT
  Sex: Female

DRUGS (2)
  1. MOTRIN [Suspect]
     Indication: BACK PAIN
  2. NAPROXEN [Suspect]
     Indication: BACK PAIN

REACTIONS (1)
  - PERIPHERAL EMBOLISM [None]
